FAERS Safety Report 22083693 (Version 1)
Quarter: 2023Q1

REPORT INFORMATION
  Report Type: Spontaneous
  Country: IT (occurrence: IT)
  Receive Date: 20230310
  Receipt Date: 20230310
  Transmission Date: 20230418
  Serious: Yes (Death, Other)
  Sender: FDA-Public Use
  Company Number: IT-EUSA PHARMA (NETHERLANDS) B.V.-2022IT000490

PATIENT

DRUGS (1)
  1. SYLVANT [Suspect]
     Active Substance: SILTUXIMAB
     Indication: Castleman^s disease
     Dosage: 11 MG/KG; EVERY WEEK FOR 8 WEEKS
     Route: 065

REACTIONS (2)
  - Death [Fatal]
  - Off label use [Unknown]
